FAERS Safety Report 4572281-5 (Version None)
Quarter: 2005Q1

REPORT INFORMATION
  Report Type: 
  Country: None (occurrence: None)
  Receive Date: 20050203
  Receipt Date: 20050127
  Transmission Date: 20050727
  Serious: Yes (Death)
  Sender: FDA-Public Use
  Company Number: 2005AP00613

PATIENT
  Age: 85 Year
  Sex: Female

DRUGS (1)
  1. SEROQUEL [Suspect]
     Indication: DELIRIUM
     Dosage: 12.5 MG DAILY PO
     Route: 048
     Dates: start: 20050120

REACTIONS (1)
  - HYPOTHERMIA [None]
